FAERS Safety Report 16858396 (Version 1)
Quarter: 2019Q3

REPORT INFORMATION
  Report Type: Spontaneous
  Country: US (occurrence: US)
  Receive Date: 20190805
  Receipt Date: 20190805
  Transmission Date: 20191005
  Serious: No
  Sender: FDA-Public Use
  Company Number: None

PATIENT
  Age: 42 Year
  Sex: Female

DRUGS (2)
  1. PROCRIT [Suspect]
     Active Substance: ERYTHROPOIETIN
     Indication: CHRONIC KIDNEY DISEASE
     Dosage: ?          OTHER STRENGTH:20000U/M;?
     Route: 058
     Dates: start: 20190620
  2. PROCRIT [Suspect]
     Active Substance: ERYTHROPOIETIN
     Indication: SICKLE CELL ANAEMIA
     Dosage: ?          OTHER STRENGTH:20000U/M;?
     Route: 058
     Dates: start: 20190620

REACTIONS (1)
  - Vision blurred [None]

NARRATIVE: CASE EVENT DATE: 201907
